FAERS Safety Report 7156080-6 (Version None)
Quarter: 2010Q4

REPORT INFORMATION
  Report Type: 
  Country: None (occurrence: None)
  Receive Date: 20101123
  Receipt Date: 20100928
  Transmission Date: 20110411
  Serious: Yes (Other)
  Sender: FDA-Public Use
  Company Number: 019532

PATIENT
  Sex: Female

DRUGS (8)
  1. CIMZIA [Suspect]
     Indication: CROHN'S DISEASE
     Dosage: (400 MG 1X/2 WEEKS SUBCUTANEOUS) (200 MG 1X/2 WEEKS SUBCUTANEOUS)
     Route: 058
     Dates: start: 20100518, end: 20100615
  2. CIMZIA [Suspect]
     Indication: CROHN'S DISEASE
     Dosage: (400 MG 1X/2 WEEKS SUBCUTANEOUS) (200 MG 1X/2 WEEKS SUBCUTANEOUS)
     Route: 058
     Dates: start: 20100615
  3. VITAMIN B-12 [Concomitant]
  4. AMITRIPTYLINE [Concomitant]
  5. TYLENOL (CAPLET) [Concomitant]
  6. FOSAMAX [Concomitant]
  7. DARVOCET-N 100 [Concomitant]
  8. NEOMYCIN [Concomitant]

REACTIONS (1)
  - FREQUENT BOWEL MOVEMENTS [None]
